FAERS Safety Report 18831914 (Version 5)
Quarter: 2023Q2

REPORT INFORMATION
  Report Type: Spontaneous
  Country: GB (occurrence: GB)
  Receive Date: 20210203
  Receipt Date: 20230621
  Transmission Date: 20230722
  Serious: Yes (Death, Life-Threatening, Hospitalization, Other)
  Sender: FDA-Public Use
  Company Number: GB-MHRA-ADR 24624570

PATIENT
  Age: 75 Year
  Sex: Female

DRUGS (17)
  1. ATORVASTATIN [Suspect]
     Active Substance: ATORVASTATIN
     Indication: Hypercholesterolaemia
     Dosage: UNK
     Route: 065
     Dates: start: 1999
  2. AMOXICILLIN [Suspect]
     Active Substance: AMOXICILLIN
     Indication: Product used for unknown indication
     Dosage: UNK
     Route: 065
  3. CLARITHROMYCIN [Suspect]
     Active Substance: CLARITHROMYCIN
     Indication: Hepatorenal syndrome
     Dosage: UNK
     Route: 065
  4. LISINOPRIL [Suspect]
     Active Substance: LISINOPRIL
     Indication: Hypertension
     Dosage: UNK
     Route: 048
     Dates: start: 200203
  5. ARAVA [Suspect]
     Active Substance: LEFLUNOMIDE
     Indication: Rheumatoid arthritis
     Dosage: 20 MILLIGRAM
     Route: 065
     Dates: start: 200203, end: 200203
  6. ASPIRIN [Suspect]
     Active Substance: ASPIRIN
     Indication: Angina pectoris
     Dosage: UNK
     Route: 065
     Dates: start: 200203
  7. BUDESONIDE [Suspect]
     Active Substance: BUDESONIDE
     Indication: Asthma
     Dosage: UNK
     Route: 055
  8. COCODAMOL [Suspect]
     Active Substance: ACETAMINOPHEN\CODEINE PHOSPHATE
     Indication: Rheumatoid arthritis
     Dosage: UNK
     Route: 065
  9. FENTANYL [Suspect]
     Active Substance: FENTANYL
     Indication: Anaesthesia
     Dosage: UNK
     Route: 042
     Dates: start: 200203, end: 200203
  10. NITROGLYCERIN [Suspect]
     Active Substance: NITROGLYCERIN
     Indication: Angina pectoris
     Dosage: UNK
     Route: 048
     Dates: start: 200203, end: 200203
  11. MIDAZOLAM [Suspect]
     Active Substance: MIDAZOLAM
     Indication: Muscle spasms
     Dosage: UNK
     Route: 065
     Dates: start: 200203, end: 200203
  12. PANCURONIUM BROMIDE [Suspect]
     Active Substance: PANCURONIUM BROMIDE
     Indication: Muscle spasms
     Dosage: UNK
     Route: 065
     Dates: start: 200203
  13. QUININE SULFATE [Suspect]
     Active Substance: QUININE SULFATE
     Indication: Muscle spasms
     Dosage: UNK
     Route: 065
  14. LANSOPRAZOLE [Suspect]
     Active Substance: LANSOPRAZOLE
     Indication: Duodenal ulcer
     Dosage: UNK
     Route: 065
  15. DILTIAZEM [Concomitant]
     Active Substance: DILTIAZEM
     Indication: Hypertension
     Dosage: UNK
     Route: 065
  16. DIPRIVAN [Concomitant]
     Active Substance: PROPOFOL
     Indication: Anaesthesia
     Dosage: UNK
     Route: 042
  17. PROPOFOL [Concomitant]
     Active Substance: PROPOFOL
     Indication: Anaesthesia
     Dosage: UNK
     Route: 042

REACTIONS (14)
  - Hepatic ischaemia [Fatal]
  - Gastrointestinal haemorrhage [Fatal]
  - Coagulopathy [Fatal]
  - Haematemesis [Fatal]
  - Hypovolaemia [Fatal]
  - Hepatorenal syndrome [Fatal]
  - Renal impairment [Fatal]
  - Labile blood pressure [Fatal]
  - Muscle relaxant therapy [Fatal]
  - Renal failure [Fatal]
  - Ulcer [Fatal]
  - Hepatic failure [Fatal]
  - Hepatocellular injury [Fatal]
  - Coronary artery bypass [Fatal]
